FAERS Safety Report 5137308-0 (Version None)
Quarter: 2006Q4

REPORT INFORMATION
  Report Type: 
  Country: None (occurrence: None)
  Receive Date: 20061030
  Receipt Date: 20051007
  Transmission Date: 20070319
  Serious: Yes (Disabling)
  Sender: FDA-Public Use
  Company Number: US-GLAXOSMITHKLINE-A0577544A

PATIENT
  Age: 76 Year
  Sex: Male
  Weight: 95.5 kg

DRUGS (10)
  1. ADVAIR HFA [Suspect]
     Indication: ASTHMA
     Route: 055
     Dates: start: 20050601
  2. ALBUTEROL [Concomitant]
     Indication: ASTHMA
  3. SPIRIVA [Concomitant]
     Indication: ASTHMA
     Route: 045
  4. PREDNISON [Concomitant]
     Indication: ASTHMA
     Route: 048
  5. SINGULAIR [Concomitant]
     Indication: ASTHMA
     Route: 048
  6. HYZAAR [Concomitant]
     Indication: HYPERTENSION
     Route: 048
  7. DILTIAZEM HCL [Concomitant]
     Indication: HYPERTENSION
     Route: 048
  8. LEVOXYL [Concomitant]
     Indication: HYPOTHYROIDISM
     Route: 048
  9. FOSAMAX [Concomitant]
     Indication: OSTEOPOROSIS
     Route: 048
  10. PRILOSEC [Concomitant]
     Route: 048

REACTIONS (2)
  - CANDIDIASIS [None]
  - DYSPHONIA [None]
